FAERS Safety Report 8478116-2 (Version None)
Quarter: 2012Q2

REPORT INFORMATION
  Report Type: 
  Country: None (occurrence: None)
  Receive Date: 20120629
  Receipt Date: 20120625
  Transmission Date: 20120825
  Serious: Yes (Death, Hospitalization, Other)
  Sender: FDA-Public Use
  Company Number: US-PFIZER INC-2012088214

PATIENT
  Sex: Male

DRUGS (21)
  1. PRILOSEC [Concomitant]
     Dosage: 20 MG, 1X/DAY
     Route: 048
  2. COREG [Concomitant]
     Dosage: 3.125 MG, 2X/DAY
     Route: 048
  3. NOVOLOG [Concomitant]
     Route: 058
  4. COMBIVENT [Concomitant]
     Dosage: 2 PUFFS PO (BY MOUTH)
     Route: 048
  5. REVATIO [Suspect]
     Dosage: 20 MG, 3X/DAY
     Route: 048
  6. WELLBUTRIN [Concomitant]
     Dosage: 150 MG, 2X/DAY
     Route: 048
  7. MIRTAZAPINE [Concomitant]
     Dosage: 30 MG, 1X/DAY
     Route: 048
  8. LISINOPRIL [Concomitant]
  9. FLOVENT [Concomitant]
     Dosage: 2 PUFFS, 2X/DAY
     Route: 055
  10. ASPIRIN [Concomitant]
     Dosage: 81 MG, 1X/DAY
     Route: 048
  11. INSPRA [Suspect]
     Dosage: 25 MG, DAILY
     Route: 048
  12. DUONEB [Concomitant]
     Dosage: 1 PUFF (PO) BY MOUTH 4XDAY
  13. COUMADIN [Concomitant]
     Dosage: 2.5 5MG, 5MG MONDAY, SAT OTHER DAYS 2.5MG
     Route: 048
  14. PROZAC [Concomitant]
     Dosage: 20 MG, 1X/DAY
     Route: 048
  15. MULTI-VITAMINS [Concomitant]
     Dosage: 1 DF, 1X/DAY
     Route: 048
  16. ASCORBIC ACID [Concomitant]
     Dosage: 500 MG, 2X/DAY
     Route: 048
  17. SIMVASTATIN [Concomitant]
     Dosage: 40 MG, 1X/DAY
     Route: 048
  18. COLACE [Concomitant]
     Dosage: 200 MG, 1X/DAY
     Route: 048
  19. LANTUS [Concomitant]
     Dosage: 30 IU, 1X/DAY AT BEDTIME
     Route: 058
  20. POTASSIUM CHLORIDE [Concomitant]
     Dosage: 20 MEQ, 1X/DAY
     Route: 048
  21. MUCINEX [Concomitant]
     Dosage: 1 2 TABS
     Route: 048

REACTIONS (4)
  - CARDIO-RESPIRATORY ARREST [None]
  - ASTHENIA [None]
  - FALL [None]
  - RENAL FAILURE ACUTE [None]
